FAERS Safety Report 4921541-4 (Version None)
Quarter: 2006Q1

REPORT INFORMATION
  Report Type: 
  Country: None (occurrence: None)
  Receive Date: 20060224
  Receipt Date: 20060120
  Transmission Date: 20060701
  Serious: Yes (Death, Hospitalization)
  Sender: FDA-Public Use
  Company Number: PHHO2006PH01268

PATIENT
  Sex: Female

DRUGS (3)
  1. GLEEVEC [Suspect]
     Indication: CHRONIC MYELOID LEUKAEMIA
     Dosage: 400 MG, QD
     Route: 048
     Dates: start: 20040622
  2. GLEEVEC [Suspect]
     Dosage: 800 MG, QD
     Route: 048
  3. GLEEVEC [Suspect]
     Dosage: 600 MG, QD
     Route: 048

REACTIONS (6)
  - ANAEMIA [None]
  - DIZZINESS [None]
  - DRUG RESISTANCE [None]
  - LEUKOCYTOSIS [None]
  - PULMONARY HAEMORRHAGE [None]
  - THROMBOCYTHAEMIA [None]
